FAERS Safety Report 7516468-8 (Version None)
Quarter: 2011Q2

REPORT INFORMATION
  Report Type: 
  Country: None (occurrence: None)
  Receive Date: 20110601
  Receipt Date: 20110513
  Transmission Date: 20111010
  Serious: Yes (Hospitalization)
  Sender: FDA-Public Use
  Company Number: A0789894A

PATIENT
  Age: 53 Year
  Sex: Female
  Weight: 100 kg

DRUGS (11)
  1. SINGULAIR [Concomitant]
  2. VIOXX [Concomitant]
  3. ALTACE [Concomitant]
  4. AVANDIA [Suspect]
     Dosage: 8MG PER DAY
     Route: 065
     Dates: start: 20010101, end: 20070101
  5. EFFEXOR [Concomitant]
  6. ALLEGRA [Concomitant]
  7. ADVAIR DISKUS 100/50 [Concomitant]
  8. COREG [Concomitant]
  9. SPIRIVA [Concomitant]
  10. ALBUTEROL SULFATE AUTOHALER [Concomitant]
  11. LIPITOR [Concomitant]

REACTIONS (3)
  - MYOCARDIAL INFARCTION [None]
  - PAIN [None]
  - MYOCARDIAL ISCHAEMIA [None]
